FAERS Safety Report 9060631 (Version 2)
Quarter: 2013Q1

REPORT INFORMATION
  Report Type: Spontaneous
  Country: JP (occurrence: JP)
  Receive Date: 20130212
  Receipt Date: 20130318
  Transmission Date: 20140127
  Serious: Yes (Hospitalization)
  Sender: FDA-Public Use
  Company Number: JP-B.I. PHARMACEUTICALS,INC./RIDGEFIELD-2013-BI-03529NB

PATIENT
  Age: 72 Year
  Sex: Male

DRUGS (13)
  1. SPIRIVA [Suspect]
     Indication: CHRONIC OBSTRUCTIVE PULMONARY DISEASE
     Dosage: 5 MCG
     Route: 055
     Dates: start: 20120927
  2. LASIX [Concomitant]
     Indication: CARDIAC FAILURE
     Dosage: 40 MG
     Route: 048
     Dates: start: 20120815
  3. BAYASPIRIN [Concomitant]
     Indication: THROMBOSIS PROPHYLAXIS
     Dosage: 100 MG
     Route: 048
     Dates: start: 20120111
  4. PARIET [Concomitant]
     Indication: GASTRITIS PROPHYLAXIS
     Dosage: 10 MG
     Route: 048
     Dates: start: 20120111
  5. LUPRAC [Concomitant]
     Indication: HYPERTENSION
     Dosage: 4 MG
     Route: 048
     Dates: start: 20120222
  6. SPIRONOLACTONE [Concomitant]
     Route: 065
  7. AMLODIN [Concomitant]
     Route: 065
  8. AIROCOOL [Concomitant]
     Route: 065
  9. PANAPIDIN [Concomitant]
     Route: 065
  10. ALLOZYM [Concomitant]
     Route: 065
  11. THEODUR [Concomitant]
     Route: 065
  12. WARFARIN POTASSIUM [Concomitant]
     Route: 065
  13. ONBREZ [Concomitant]
     Route: 065

REACTIONS (3)
  - Thoracic vertebral fracture [Not Recovered/Not Resolved]
  - Cardiac failure [Not Recovered/Not Resolved]
  - Constipation [Not Recovered/Not Resolved]
